FAERS Safety Report 8823436 (Version 1)
Quarter: 2012Q4

REPORT INFORMATION
  Report Type: 
  Country: US (occurrence: US)
  Receive Date: 20121003
  Receipt Date: 20121003
  Transmission Date: 20130627
  Serious: Yes (Other)
  Sender: FDA-Public Use
  Company Number: US-009507513-1210USA000640

PATIENT
  Sex: Male

DRUGS (12)
  1. JANUVIA [Suspect]
     Dosage: 1 DF, qd
     Route: 048
  2. GLYBURIDE [Concomitant]
  3. AMITRIPTYLINE HYDROCHLORIDE [Concomitant]
  4. PLAVIX [Concomitant]
  5. XANTHOPHYLL [Concomitant]
  6. LOPID [Concomitant]
  7. FOLIC ACID [Concomitant]
  8. ASPIRIN [Concomitant]
  9. LOVAZA [Concomitant]
  10. METOPROLOL [Concomitant]
  11. METFORMIN [Concomitant]
  12. LISINOPRIL [Concomitant]

REACTIONS (2)
  - Pruritus generalised [Unknown]
  - Rash [Unknown]
